FAERS Safety Report 9856446 (Version 1)
Quarter: 2014Q1

REPORT INFORMATION
  Report Type: Spontaneous
  Country: DE (occurrence: DE)
  Receive Date: 20140130
  Receipt Date: 20140130
  Transmission Date: 20141002
  Serious: Yes (Death)
  Sender: FDA-Public Use
  Company Number: DE-JNJFOC-20140112485

PATIENT
  Age: 68 Year
  Sex: Male

DRUGS (16)
  1. DOXORUBICIN [Suspect]
     Indication: MANTLE CELL LYMPHOMA
     Route: 042
  2. DOXORUBICIN [Suspect]
     Indication: HODGKIN^S DISEASE
     Route: 042
  3. RITUXIMAB [Suspect]
     Indication: MANTLE CELL LYMPHOMA
     Route: 065
  4. RITUXIMAB [Suspect]
     Indication: HODGKIN^S DISEASE
     Route: 065
  5. CYCLOPHOSPHAMIDE [Suspect]
     Indication: MANTLE CELL LYMPHOMA
     Route: 065
  6. CYCLOPHOSPHAMIDE [Suspect]
     Indication: HODGKIN^S DISEASE
     Route: 065
  7. VINCRISTINE [Suspect]
     Indication: MANTLE CELL LYMPHOMA
     Route: 065
  8. VINCRISTINE [Suspect]
     Indication: HODGKIN^S DISEASE
     Route: 065
  9. PREDNISONE [Suspect]
     Indication: MANTLE CELL LYMPHOMA
     Route: 065
  10. PREDNISONE [Suspect]
     Indication: HODGKIN^S DISEASE
     Route: 065
  11. ADRIAMYCIN [Suspect]
     Indication: MANTLE CELL LYMPHOMA
     Route: 065
  12. ADRIAMYCIN [Suspect]
     Indication: HODGKIN^S DISEASE
     Route: 065
  13. VINBLASTINE [Suspect]
     Indication: MANTLE CELL LYMPHOMA
     Route: 065
  14. VINBLASTINE [Suspect]
     Indication: HODGKIN^S DISEASE
     Route: 065
  15. DACARBAZINE [Suspect]
     Indication: MANTLE CELL LYMPHOMA
     Route: 065
  16. DACARBAZINE [Suspect]
     Indication: HODGKIN^S DISEASE
     Route: 065

REACTIONS (4)
  - Respiratory failure [Fatal]
  - Bacterial sepsis [Unknown]
  - Intestinal obstruction [Unknown]
  - Pneumonia [Unknown]
